FAERS Safety Report 8209669-7 (Version None)
Quarter: 2012Q1

REPORT INFORMATION
  Report Type: 
  Country: None (occurrence: None)
  Receive Date: 20120314
  Receipt Date: 20120229
  Transmission Date: 20120608
  Serious: Yes (Life-Threatening, Hospitalization, Other)
  Sender: FDA-Public Use
  Company Number: JP-PFIZER INC-2012055548

PATIENT
  Age: 79 Year
  Sex: Female
  Weight: 53 kg

DRUGS (4)
  1. ZOSYN [Suspect]
     Dosage: 2.25 G, 4X/DAY
     Route: 041
     Dates: start: 20120130, end: 20120203
  2. BEHYD [Concomitant]
     Route: 048
  3. ZOSYN [Suspect]
     Indication: BRONCHOPNEUMONIA
     Dosage: 4.5 G, 1X/DAY
     Route: 041
     Dates: start: 20120119, end: 20120121
  4. LEVOFLOXACIN [Concomitant]
     Indication: BRONCHOPNEUMONIA
     Dosage: 500 MG/DAY
     Route: 048
     Dates: start: 20120119, end: 20120128

REACTIONS (1)
  - GASTROENTERITIS STAPHYLOCOCCAL [None]
